FAERS Safety Report 5413467-7 (Version None)
Quarter: 2007Q3

REPORT INFORMATION
  Report Type: 
  Country: None (occurrence: None)
  Receive Date: 20070814
  Receipt Date: 20070803
  Transmission Date: 20080115
  Serious: Yes (Life-Threatening, Other)
  Sender: FDA-Public Use
  Company Number: FR-JNJFOC-20070604809

PATIENT
  Age: 61 Year
  Sex: Male
  Weight: 76 kg

DRUGS (10)
  1. REMICADE [Suspect]
     Indication: RHEUMATOID ARTHRITIS
     Dosage: RECEIVED 34 INFUSIONS
     Route: 042
     Dates: start: 20020321, end: 20070329
  2. DIAMICRON [Concomitant]
     Route: 048
  3. PRAVASTATIN [Concomitant]
     Route: 048
  4. AMLODIPINE [Concomitant]
     Route: 048
  5. FOSAVANCE [Concomitant]
     Route: 048
  6. ACETAMINOPHEN AND TRAMADOL HCL [Concomitant]
     Route: 048
  7. AZATHIOPRINE SODIUM [Concomitant]
     Route: 048
  8. CORTANCYL [Concomitant]
     Route: 048
  9. OROCAL [Concomitant]
     Route: 048
  10. OMEPRAZOLE [Concomitant]
     Route: 048

REACTIONS (2)
  - COLON CANCER [None]
  - METASTASES TO LIVER [None]
